FAERS Safety Report 8351507-6 (Version None)
Quarter: 2012Q2

REPORT INFORMATION
  Report Type: 
  Country: None (occurrence: None)
  Receive Date: 20120511
  Receipt Date: 20120501
  Transmission Date: 20120825
  Serious: Yes (Other)
  Sender: FDA-Public Use
  Company Number: US-PAR PHARMACEUTICAL, INC-2011SCPR003494

PATIENT

DRUGS (1)
  1. CHOLESTYRAMINE [Suspect]
     Indication: HYPERCHOLESTEROLAEMIA
     Dosage: ONE PACKET DAILY
     Route: 048
     Dates: start: 20110601, end: 20111101

REACTIONS (2)
  - CONSTIPATION [None]
  - INTESTINAL OBSTRUCTION [None]
